FAERS Safety Report 15152984 (Version 2)
Quarter: 2018Q4

REPORT INFORMATION
  Report Type: Spontaneous
  Country: US (occurrence: US)
  Receive Date: 20180717
  Receipt Date: 20181108
  Transmission Date: 20190204
  Serious: No
  Sender: FDA-Public Use
  Company Number: US-PFIZER INC-2018284089

PATIENT
  Age: 65 Year
  Sex: Female

DRUGS (10)
  1. CELECOXIB. [Suspect]
     Active Substance: CELECOXIB
     Indication: OSTEOARTHRITIS
     Dosage: 400 MG, DAILY (200 MG / QTY 60 / DAYS SUPPLY 30)
  2. VITRON C [Concomitant]
     Active Substance: ASCORBIC ACID\IRON
     Dosage: UNK
  3. CALTRATE 600+D [Concomitant]
     Dosage: UNK
  4. CINNAMON. [Concomitant]
     Active Substance: CINNAMON
     Dosage: 1200 MG, UNK
  5. VITAMIN D3 [Concomitant]
     Active Substance: CHOLECALCIFEROL
     Dosage: 5000 IU, UNK
  6. CENTRUM SILVER WOMEN 50+ [Concomitant]
     Dosage: UNK
  7. VALSARTAN AND HYDROCHLOROTHIAZIDE [Concomitant]
     Active Substance: HYDROCHLOROTHIAZIDE\VALSARTAN
     Dosage: UNK [VALSARTAN: 80 MG] / [HYDROCHLOROTHIAZIDE: 12.5 MG]
     Dates: end: 20181008
  8. VITAMIN C  ADULT GUMMIES [Concomitant]
     Dosage: 250 MG, UNK (X 2  )
  9. B6 + B12 FOLIC ACID [Concomitant]
     Dosage: UNK (3X WEEK)
     Route: 060
  10. CELECOXIB. [Suspect]
     Active Substance: CELECOXIB
     Dosage: 200 MG, 2X/DAY
     Dates: start: 20161223, end: 20161226

REACTIONS (1)
  - Drug ineffective [Recovered/Resolved]

NARRATIVE: CASE EVENT DATE: 20161223
